FAERS Safety Report 22075753 (Version 1)
Quarter: 2023Q1

REPORT INFORMATION
  Report Type: Spontaneous
  Country: US (occurrence: US)
  Receive Date: 20230308
  Receipt Date: 20230308
  Transmission Date: 20230417
  Serious: No
  Sender: FDA-Public Use
  Company Number: US-BAUSCH-BL-2023-003549

PATIENT
  Sex: Female

DRUGS (2)
  1. IPRATROPIUM BROMIDE [Suspect]
     Active Substance: IPRATROPIUM BROMIDE
     Indication: Nasal disorder
     Route: 045
  2. IPRATROPIUM BROMIDE [Suspect]
     Active Substance: IPRATROPIUM BROMIDE
     Indication: Product use in unapproved indication

REACTIONS (11)
  - Sleep disorder [Unknown]
  - Feeling abnormal [Unknown]
  - Bowel movement irregularity [Unknown]
  - Tooth discolouration [Unknown]
  - Feeling jittery [Unknown]
  - Rhinalgia [Unknown]
  - Oral pain [Unknown]
  - Nasal discomfort [Unknown]
  - Nasal dryness [Unknown]
  - Dry mouth [Unknown]
  - Product use in unapproved indication [Unknown]
